FAERS Safety Report 9080349 (Version 1)
Quarter: 2013Q1

REPORT INFORMATION
  Report Type: Report from Study
  Country: US (occurrence: US)
  Receive Date: 20130130
  Receipt Date: 20130130
  Transmission Date: 20140127
  Serious: No
  Sender: FDA-Public Use
  Company Number: US-ABBOTT-12P-163-0966366-00

PATIENT
  Age: 17 None
  Sex: Female

DRUGS (3)
  1. HUMIRA 40 MG/0.8 ML PEN [Suspect]
     Indication: JUVENILE IDIOPATHIC ARTHRITIS
     Dates: start: 20120718
  2. PREVACID [Concomitant]
     Indication: GASTROOESOPHAGEAL REFLUX DISEASE
     Dosage: 30MG DAILY
  3. DICLOMAX SODIUM [Concomitant]
     Indication: ARTHRITIS
     Dosage: 150MG DAILY

REACTIONS (2)
  - Injection site rash [Not Recovered/Not Resolved]
  - Injection site rash [Unknown]
